FAERS Safety Report 9348483 (Version 1)
Quarter: 2013Q2

REPORT INFORMATION
  Report Type: Spontaneous
  Country: US (occurrence: None)
  Receive Date: 20130613
  Receipt Date: 20130613
  Transmission Date: 20140414
  Serious: Yes (Life-Threatening, Hospitalization)
  Sender: FDA-Public Use
  Company Number: None

PATIENT
  Age: 60 Year
  Sex: Female
  Weight: 49.44 kg

DRUGS (1)
  1. CLINDAMYCIN [Suspect]
     Indication: TOOTH EXTRACTION
     Dosage: 5 DAYS
     Dates: start: 20130425

REACTIONS (9)
  - Nausea [None]
  - Muscle spasms [None]
  - Asthenia [None]
  - Pallor [None]
  - Bruxism [None]
  - Compulsive lip biting [None]
  - Convulsion [None]
  - Pseudomembranous colitis [None]
  - Impaired work ability [None]
